FAERS Safety Report 5026978-3 (Version None)
Quarter: 2006Q2

REPORT INFORMATION
  Report Type: 
  Country: None (occurrence: None)
  Receive Date: 20060609
  Receipt Date: 20060530
  Transmission Date: 20061013
  Serious: Yes (Hospitalization, Other)
  Sender: FDA-Public Use
  Company Number: 2006069539

PATIENT
  Age: 86 Year
  Sex: Female

DRUGS (7)
  1. DILANTIN [Suspect]
     Indication: EPILEPSY
     Dosage: 300 MG, ORAL
     Route: 048
     Dates: start: 20030402, end: 20050402
  2. DILANTIN [Suspect]
     Indication: EPILEPSY
     Dosage: 300 MG, ORAL
     Route: 048
     Dates: start: 20060101
  3. ARICEPT [Suspect]
     Indication: DEMENTIA ALZHEIMER'S TYPE
     Dosage: SEE IMAGE
     Route: 048
     Dates: start: 20040928, end: 20050327
  4. ARICEPT [Suspect]
     Indication: DEMENTIA ALZHEIMER'S TYPE
     Dosage: SEE IMAGE
     Route: 048
     Dates: start: 20050328
  5. ENAPREN (ENALAPRIL MALEATE) [Concomitant]
  6. CARDIRENE (ACETYLSALICYLATE LYSINE) [Concomitant]
  7. LASIX [Concomitant]

REACTIONS (5)
  - BALANCE DISORDER [None]
  - CONCUSSION [None]
  - COORDINATION ABNORMAL [None]
  - DRUG TOXICITY [None]
  - FALL [None]
